FAERS Safety Report 5263311-6 (Version None)
Quarter: 2007Q1

REPORT INFORMATION
  Report Type: 
  Country: None (occurrence: None)
  Receive Date: 20061219
  Receipt Date: 20060829
  Transmission Date: 20070707
  Serious: No
  Sender: FDA-Public Use
  Company Number: 2006US001989

PATIENT
  Age: 67 Year
  Sex: Female

DRUGS (3)
  1. VESICARE [Suspect]
     Indication: HYPERTONIC BLADDER
     Dosage: 10 MG, UID/QD, ORAL
     Route: 048
     Dates: start: 20060801
  2. DILTAZEM (DILTAZEM HYDROCHLORIDE) [Concomitant]
  3. LIPITOR [Concomitant]

REACTIONS (1)
  - DRUG INEFFECTIVE [None]
